FAERS Safety Report 16176043 (Version 1)
Quarter: 2019Q2

REPORT INFORMATION
  Report Type: Spontaneous
  Country: KR (occurrence: KR)
  Receive Date: 20190409
  Receipt Date: 20190409
  Transmission Date: 20190711
  Serious: Yes (Other)
  Sender: FDA-Public Use
  Company Number: KR-MYLANLABS-2019M1032375

PATIENT
  Age: 47 Year
  Sex: Female

DRUGS (4)
  1. PEGYLATED LIPOSOMAL DOXORUBICIN [Suspect]
     Active Substance: DOXORUBICIN
     Indication: OVARIAN CANCER STAGE IV
     Dosage: 12 CYCLES; SECOND-LINE CHEMOTHERAPY
     Route: 065
     Dates: start: 201510
  2. PACLITAXEL. [Suspect]
     Active Substance: PACLITAXEL
     Indication: OVARIAN CANCER STAGE IV
     Dosage: 6 CYCLES ; FIRST-LINE CHEMOTHERAPY
     Route: 065
     Dates: start: 201504, end: 201508
  3. CARBOPLATIN. [Suspect]
     Active Substance: CARBOPLATIN
     Indication: OVARIAN CANCER STAGE IV
     Dosage: AUC 5; 6 CYCLES ; FIRST-LINE CHEMOTHERAPY
     Route: 065
     Dates: start: 201504, end: 201508
  4. BEVACIZUMAB. [Suspect]
     Active Substance: BEVACIZUMAB
     Indication: OVARIAN CANCER STAGE IV
     Dosage: 23 CYCLES; SECOND-LINE CHEMOTHERAPY
     Route: 065
     Dates: start: 201510

REACTIONS (1)
  - Drug ineffective [Unknown]
